FAERS Safety Report 9642802 (Version 2)
Quarter: 2013Q4

REPORT INFORMATION
  Report Type: Report from Study
  Country: NL (occurrence: NL)
  Receive Date: 20131024
  Receipt Date: 20131025
  Transmission Date: 20140711
  Serious: Yes (Hospitalization)
  Sender: FDA-Public Use
  Company Number: NL-ROCHE-1291130

PATIENT
  Age: 66 Year
  Sex: Female

DRUGS (4)
  1. BEVACIZUMAB [Suspect]
     Indication: BREAST CANCER
     Route: 042
     Dates: start: 20120220, end: 20130819
  2. PACLITAXEL [Suspect]
     Indication: BREAST CANCER
     Route: 042
     Dates: start: 20120220, end: 20120918
  3. AMLODIPINE [Concomitant]
     Route: 065
     Dates: start: 20120509
  4. METOPROLOL SUCCINATE [Concomitant]
     Route: 065
     Dates: start: 20120220

REACTIONS (2)
  - Hypercalcaemia [Recovered/Resolved]
  - Anaemia [Recovered/Resolved]
